FAERS Safety Report 16366916 (Version 1)
Quarter: 2019Q2

REPORT INFORMATION
  Report Type: Spontaneous
  Country: US (occurrence: US)
  Receive Date: 20190529
  Receipt Date: 20190529
  Transmission Date: 20190711
  Serious: Yes (Life-Threatening, Hospitalization)
  Sender: FDA-Public Use
  Company Number: US-STRIDES ARCOLAB LIMITED-2019SP004576

PATIENT
  Age: 1 Hour
  Sex: Female
  Weight: 2.8 kg

DRUGS (1)
  1. PROMETHAZINE HYDROCHLORIDE. [Suspect]
     Active Substance: PROMETHAZINE HYDROCHLORIDE
     Indication: PRODUCT USED FOR UNKNOWN INDICATION
     Dosage: 25 MG, 8.9MG/KG DOSE
     Route: 030

REACTIONS (7)
  - Hypopnoea [Recovered/Resolved]
  - Wrong patient received product [Unknown]
  - Somnolence [Recovered/Resolved]
  - Poor feeding infant [Recovered/Resolved]
  - Accidental overdose [Unknown]
  - Contraindicated product administered [Unknown]
  - Extrasystoles [Recovered/Resolved]
